FAERS Safety Report 7955029 (Version 4)
Quarter: 2013Q2

REPORT INFORMATION
  Report Type: Report from Study
  Country: US (occurrence: US)
  Receive Date: 20110523
  Receipt Date: 20130404
  Transmission Date: 20140414
  Serious: Yes (Disabling)
  Sender: FDA-Public Use
  Company Number: US-AMGEN-KDC427393

PATIENT
  Age: 95 Year
  Sex: Male
  Weight: 73 kg

DRUGS (5)
  1. DENOSUMAB [Suspect]
     Indication: PROSTATE CANCER
     Dosage: UNK UNK, UNK
     Route: 058
     Dates: start: 20060921, end: 20091116
  2. GLIBENCLAMIDE [Concomitant]
     Dosage: 5 MG, QD
  3. CITALOPRAM [Concomitant]
     Dosage: UNK
  4. SULFAMETHOXAZOLE [Concomitant]
     Dosage: UNK
  5. CALCIUM [Concomitant]
     Dosage: UNK UNK, QD

REACTIONS (2)
  - Bone disorder [Recovered/Resolved]
  - Pain in jaw [Recovered/Resolved]
